FAERS Safety Report 10036453 (Version 1)
Quarter: 2014Q1

REPORT INFORMATION
  Report Type: Spontaneous
  Country: US (occurrence: US)
  Receive Date: 20140326
  Receipt Date: 20140326
  Transmission Date: 20141002
  Serious: No
  Sender: FDA-Public Use
  Company Number: US-009507513-1403USA009296

PATIENT
  Age: 65 Year
  Sex: Female

DRUGS (3)
  1. DULERA [Suspect]
     Indication: ASTHMA
     Dosage: TWO PUFFS TWICE DAILY, BID
     Route: 055
     Dates: start: 2012
  2. SINGULAIR [Concomitant]
     Route: 048
  3. PROVENTIL [Concomitant]
     Dosage: UNK, PRN
     Route: 055

REACTIONS (4)
  - Malaise [Recovering/Resolving]
  - Asthma [Recovering/Resolving]
  - Cough [Recovering/Resolving]
  - Drug dose omission [Unknown]
